FAERS Safety Report 6249107-7 (Version None)
Quarter: 2009Q2

REPORT INFORMATION
  Report Type: 
  Country: None (occurrence: None)
  Receive Date: 20090624
  Receipt Date: 20090612
  Transmission Date: 20091009
  Serious: Yes (Other)
  Sender: FDA-Public Use
  Company Number: URSO-2009-062-FUP#1

PATIENT
  Age: 73 Year
  Sex: Male

DRUGS (5)
  1. URSODIOL [Suspect]
     Indication: CHOLELITHIASIS
     Dosage: 300 MG, ORAL
     Route: 048
     Dates: start: 19990801, end: 20080501
  2. FAMOTIDINE [Concomitant]
  3. SELBEX (TEPRENONE) [Concomitant]
  4. AMLODIPINE BESYLATE [Concomitant]
  5. MAGLAX (MAGNESIUM OXIDE) [Concomitant]

REACTIONS (3)
  - BILE DUCT CANCER [None]
  - BILE DUCT STENOSIS [None]
  - GALLSTONE ILEUS [None]
